FAERS Safety Report 20187720 (Version 2)
Quarter: 2022Q1

REPORT INFORMATION
  Report Type: Spontaneous
  Country: US (occurrence: US)
  Receive Date: 20211215
  Receipt Date: 20220124
  Transmission Date: 20220423
  Serious: Yes (Hospitalization, Other)
  Sender: FDA-Public Use
  Company Number: US-ELI_LILLY_AND_COMPANY-US202112003606

PATIENT
  Sex: Female

DRUGS (2)
  1. HUMALOG [Suspect]
     Active Substance: INSULIN LISPRO
     Indication: Diabetes mellitus
     Dosage: 15 U, TID
     Route: 058
     Dates: start: 20170821
  2. HUMALOG [Suspect]
     Active Substance: INSULIN LISPRO
     Dosage: UNK UNK, PRN
     Route: 058

REACTIONS (6)
  - SARS-CoV-2 test positive [Recovered/Resolved with Sequelae]
  - Respiratory failure [Unknown]
  - Pneumonia [Unknown]
  - Intensive care unit acquired weakness [Unknown]
  - Gait disturbance [Recovering/Resolving]
  - Mental status changes [Unknown]
